FAERS Safety Report 5862272-6 (Version None)
Quarter: 2008Q3

REPORT INFORMATION
  Report Type: 
  Country: None (occurrence: None)
  Receive Date: 20080828
  Receipt Date: 20080821
  Transmission Date: 20090109
  Serious: Yes (Other)
  Sender: FDA-Public Use
  Company Number: GB-ALLERGAN-0810417US

PATIENT
  Sex: Female

DRUGS (1)
  1. VISTABEL [Suspect]
     Indication: SKIN WRINKLING
     Dosage: UNK, SINGLE
     Route: 030
     Dates: start: 20080820, end: 20080820

REACTIONS (2)
  - SYNCOPE [None]
  - TONIC CLONIC MOVEMENTS [None]
